FAERS Safety Report 16709686 (Version 1)
Quarter: 2019Q3

REPORT INFORMATION
  Report Type: Report from Study
  Country: None (occurrence: GR)
  Receive Date: 20190816
  Receipt Date: 20190816
  Transmission Date: 20191004
  Serious: Yes (Other)
  Sender: FDA-Public Use
  Company Number: GR-ABBVIE-19K-066-2889897-00

PATIENT
  Age: 76 Year
  Sex: Male

DRUGS (6)
  1. STILNOX [Concomitant]
     Active Substance: ZOLPIDEM TARTRATE
     Indication: INSOMNIA
     Route: 048
  2. DUODOPA [Suspect]
     Active Substance: CARBIDOPA\LEVODOPA
     Indication: PARKINSON^S DISEASE
     Dosage: MORNING DOSE: 10ML; CONTINUOUS RATE: 4.3ML/H; EXTRA DOSE: 1.5ML
     Route: 050
     Dates: start: 20180423
  3. QUEPIN [Concomitant]
     Active Substance: QUETIAPINE
     Indication: INSOMNIA
     Route: 048
  4. EXELON [Concomitant]
     Active Substance: RIVASTIGMINE TARTRATE
     Indication: PRODUCT USED FOR UNKNOWN INDICATION
     Route: 062
  5. LEPONEX [Concomitant]
     Active Substance: CLOZAPINE
     Indication: DEPRESSION
     Route: 048
  6. ESCITALOPRAM [Concomitant]
     Active Substance: ESCITALOPRAM OXALATE
     Indication: DEPRESSION
     Route: 048

REACTIONS (3)
  - Hip fracture [Not Recovered/Not Resolved]
  - Fall [Recovered/Resolved with Sequelae]
  - Dysphagia [Not Recovered/Not Resolved]

NARRATIVE: CASE EVENT DATE: 201902
